FAERS Safety Report 23926310 (Version 2)
Quarter: 2024Q2

REPORT INFORMATION
  Report Type: Spontaneous
  Country: US (occurrence: US)
  Receive Date: 20240531
  Receipt Date: 20240621
  Transmission Date: 20240716
  Serious: Yes (Other)
  Sender: FDA-Public Use
  Company Number: US-BAXTER-2024BAX019072

PATIENT
  Sex: Male

DRUGS (6)
  1. MYXREDLIN [Suspect]
     Active Substance: INSULIN HUMAN
     Indication: Hyperglycaemia
     Dosage: UNK
     Route: 041
  2. MYXREDLIN [Suspect]
     Active Substance: INSULIN HUMAN
     Dosage: UNK
     Route: 041
  3. MYXREDLIN [Suspect]
     Active Substance: INSULIN HUMAN
     Dosage: UNK
     Route: 041
  4. MYXREDLIN [Suspect]
     Active Substance: INSULIN HUMAN
     Dosage: UNK
     Route: 041
  5. MYXREDLIN [Suspect]
     Active Substance: INSULIN HUMAN
     Dosage: UNK
     Route: 041
  6. MYXREDLIN [Suspect]
     Active Substance: INSULIN HUMAN
     Dosage: UNK
     Route: 041

REACTIONS (2)
  - Critical illness [Unknown]
  - Drug ineffective [Recovered/Resolved]
